FAERS Safety Report 10933088 (Version 3)
Quarter: 2015Q4

REPORT INFORMATION
  Report Type: Spontaneous
  Country: US (occurrence: US)
  Receive Date: 20150320
  Receipt Date: 20151013
  Transmission Date: 20160304
  Serious: No
  Sender: FDA-Public Use
  Company Number: US-B.I. PHARMACEUTICALS,INC./RIDGEFIELD-2015-BI-12448BP

PATIENT
  Age: 74 Year
  Sex: Female
  Weight: 82 kg

DRUGS (2)
  1. ALBUTEROL. [Concomitant]
     Active Substance: ALBUTEROL
     Indication: ASTHMA
     Route: 055
  2. COMBIVENT [Suspect]
     Active Substance: ALBUTEROL SULFATE\IPRATROPIUM BROMIDE
     Indication: ASTHMA
     Dosage: DOSE PER APPLICATION: 20 MCG/100 MCG; DAILY DOSE: 160 MCG / 800 MCG
     Route: 055
     Dates: start: 2013

REACTIONS (5)
  - Dyspnoea [Unknown]
  - Intentional product misuse [Not Recovered/Not Resolved]
  - Dyspnoea [Recovered/Resolved]
  - Off label use [Not Recovered/Not Resolved]
  - Product quality issue [Recovered/Resolved]

NARRATIVE: CASE EVENT DATE: 2013
